FAERS Safety Report 17054986 (Version 1)
Quarter: 2019Q4

REPORT INFORMATION
  Report Type: Spontaneous
  Country: US (occurrence: US)
  Receive Date: 20191120
  Receipt Date: 20191120
  Transmission Date: 20200122
  Serious: No
  Sender: FDA-Public Use
  Company Number: US-SA-2019SA318458

PATIENT
  Age: 59 Year
  Sex: Male

DRUGS (2)
  1. NOVOLOG [Concomitant]
     Active Substance: INSULIN ASPART
     Dosage: 30 U, TID
     Route: 065
  2. TOUJEO [Suspect]
     Active Substance: INSULIN GLARGINE
     Indication: TYPE 2 DIABETES MELLITUS
     Dosage: 80 U, QD
     Route: 065
     Dates: start: 20191112

REACTIONS (8)
  - Nausea [Unknown]
  - Blood glucose increased [Unknown]
  - Intentional product use issue [Unknown]
  - Headache [Unknown]
  - Dyspnoea [Unknown]
  - Abdominal distension [Unknown]
  - Agitation [Unknown]
  - Malaise [Unknown]
